FAERS Safety Report 9163826 (Version 2)
Quarter: 2013Q3

REPORT INFORMATION
  Report Type: Spontaneous
  Country: US (occurrence: US)
  Receive Date: 20130314
  Receipt Date: 20130819
  Transmission Date: 20140515
  Serious: Yes (Other)
  Sender: FDA-Public Use
  Company Number: US-UCBSA-080227

PATIENT
  Sex: Female

DRUGS (2)
  1. VIMPAT [Suspect]
  2. VIMPAT [Suspect]
     Dosage: 150 MG IN THE AM AND 200 MG IN THE PM

REACTIONS (2)
  - Convulsion [Unknown]
  - Pregnancy [Recovered/Resolved]
